FAERS Safety Report 5196287-0 (Version None)
Quarter: 2006Q4

REPORT INFORMATION
  Report Type: 
  Country: None (occurrence: None)
  Receive Date: 20061222
  Receipt Date: 20061208
  Transmission Date: 20070319
  Serious: Yes (Hospitalization, Other)
  Sender: FDA-Public Use
  Company Number: 2006152561

PATIENT

DRUGS (4)
  1. LYRICA [Suspect]
  2. TRAMADOL HCL [Suspect]
  3. ALL OTHER THERAPEUTIC PRODUCTS (ALL OTHER THERAPEUTIC PRODUCTS) [Concomitant]
  4. SSRI (SSRI) [Suspect]

REACTIONS (3)
  - DRUG INTERACTION [None]
  - INFECTION [None]
  - PYREXIA [None]
